FAERS Safety Report 5813430-8 (Version None)
Quarter: 2008Q3

REPORT INFORMATION
  Report Type: 
  Country: None (occurrence: None)
  Receive Date: 20080715
  Receipt Date: 20080715
  Transmission Date: 20090109
  Serious: Yes (Hospitalization)
  Sender: FDA-Public Use
  Company Number: None

PATIENT
  Age: 62 Year
  Sex: Male
  Weight: 75.75 kg

DRUGS (2)
  1. VANCOMYCIN HCL [Suspect]
     Indication: INFECTION
     Dates: start: 20071003, end: 20071011
  2. PIPERACILLIN AND TAZOBACTAM [Suspect]
     Indication: INFECTION
     Dates: start: 20071003, end: 20071006

REACTIONS (11)
  - BLISTER [None]
  - GENITAL ULCERATION [None]
  - MOUTH ULCERATION [None]
  - OCULAR HYPERAEMIA [None]
  - PRURITUS [None]
  - PYREXIA [None]
  - RASH ERYTHEMATOUS [None]
  - RENAL TUBULAR NECROSIS [None]
  - SECRETION DISCHARGE [None]
  - SKIN EROSION [None]
  - SKIN HAEMORRHAGE [None]
